FAERS Safety Report 4319314-9 (Version None)
Quarter: 2004Q1

REPORT INFORMATION
  Report Type: 
  Country: None (occurrence: None)
  Receive Date: 20040316
  Receipt Date: 20040310
  Transmission Date: 20041129
  Serious: Yes (Disabling, Other)
  Sender: FDA-Public Use
  Company Number: 2004194617FR

PATIENT
  Age: 85 Year
  Sex: Male
  Weight: 75 kg

DRUGS (2)
  1. XALATAN [Suspect]
     Indication: HYPERTONIA
     Dosage: 1 GTT, QD, OPHTHALMIC
     Route: 047
     Dates: start: 20031014, end: 20031218
  2. CERVOXAN (VINBURNINE) TABLET [Concomitant]

REACTIONS (1)
  - RETINAL NEOVASCULARISATION [None]
